FAERS Safety Report 5596928-X (Version None)
Quarter: 2007Q4

REPORT INFORMATION
  Report Type: 
  Country: None (occurrence: None)
  Receive Date: 20071220
  Receipt Date: 20070627
  Transmission Date: 20080405
  Serious: Yes (Other)
  Sender: FDA-Public Use
  Company Number: A03200700728

PATIENT
  Age: 75 Year
  Sex: Male
  Weight: 72.5755 kg

DRUGS (9)
  1. AMBIEN [Suspect]
     Indication: INSOMNIA
     Dosage: 2.5 MG HS ORAL
     Route: 048
  2. AMBIEN [Suspect]
     Dosage: ORAL
     Route: 048
  3. WARFARIN SODIUM [Concomitant]
  4. FLECAINIDE ACETATE [Concomitant]
  5. DILTIAZEM HYDROCHLORIDE [Concomitant]
  6. DIGITALIS TAB [Concomitant]
  7. ACETYLSALICYLIC ACID SRT [Concomitant]
  8. TIOTROPIUM BROMIDE [Concomitant]
  9. BECLOMETHASONE DIPROPIONATE [Concomitant]

REACTIONS (4)
  - ABNORMAL BEHAVIOUR [None]
  - DRUG DEPENDENCE [None]
  - HALLUCINATION [None]
  - SOMNAMBULISM [None]
